FAERS Safety Report 11081036 (Version 1)
Quarter: 2015Q2

REPORT INFORMATION
  Report Type: Spontaneous
  Country: GB (occurrence: GB)
  Receive Date: 20150501
  Receipt Date: 20150501
  Transmission Date: 20150821
  Serious: Yes (Other)
  Sender: FDA-Public Use
  Company Number: GB-SA-2015SA054281

PATIENT
  Age: 51 Year
  Sex: Female
  Weight: 73 kg

DRUGS (6)
  1. DISOPYRAMIDE [Concomitant]
     Active Substance: DISOPYRAMIDE
     Dates: start: 20140117, end: 20150317
  2. HYDROXOCOBALAMIN [Concomitant]
     Active Substance: HYDROXOCOBALAMIN
     Route: 030
     Dates: start: 20121214
  3. DRONEDARONE [Suspect]
     Active Substance: DRONEDARONE
     Route: 065
     Dates: start: 20150317
  4. FROVATRIPTAN [Concomitant]
     Active Substance: FROVATRIPTAN
     Indication: HEADACHE
     Dosage: ONE TABLET AS SOON AS HEADACHE STARTS
     Dates: start: 20121214
  5. LIDOCAINE. [Concomitant]
     Active Substance: LIDOCAINE
     Indication: PAIN
     Dosage: CAN BE APPLIED SEVERAL TIMES DAILY FOR PAIN
     Dates: start: 20150317, end: 20150320
  6. OMEPRAZOLE. [Concomitant]
     Active Substance: OMEPRAZOLE
     Dosage: TAKE ONE OR TWO DAILY
     Dates: start: 20150108

REACTIONS (3)
  - Joint swelling [Recovering/Resolving]
  - Palpitations [Recovering/Resolving]
  - Dyspnoea [Recovering/Resolving]

NARRATIVE: CASE EVENT DATE: 20150415
